FAERS Safety Report 9471941 (Version 1)
Quarter: 2013Q3

REPORT INFORMATION
  Report Type: Spontaneous
  Country: US (occurrence: US)
  Receive Date: 20130823
  Receipt Date: 20130823
  Transmission Date: 20140515
  Serious: No
  Sender: FDA-Public Use
  Company Number: US-009507513-1308USA000758

PATIENT
  Age: 22 Year
  Sex: Female
  Weight: 88.44 kg

DRUGS (2)
  1. IMPLANON [Suspect]
     Indication: CONTRACEPTION
     Dosage: 68 MG ROD
     Route: 059
     Dates: start: 20120221, end: 20130731
  2. NEXPLANON [Concomitant]
     Dosage: UNK
     Dates: start: 20130731

REACTIONS (2)
  - Menstruation irregular [Unknown]
  - Device breakage [Unknown]
